FAERS Safety Report 20109394 (Version 2)
Quarter: 2021Q4

REPORT INFORMATION
  Report Type: Report from Study
  Country: US (occurrence: US)
  Receive Date: 20211124
  Receipt Date: 20211207
  Transmission Date: 20220303
  Serious: Yes (Hospitalization)
  Sender: FDA-Public Use
  Company Number: US-TAKEDA-2021TUS073620

PATIENT
  Sex: Female
  Weight: 59 kg

DRUGS (43)
  1. GLASSIA [Suspect]
     Active Substance: .ALPHA.1-PROTEINASE INHIBITOR HUMAN
     Indication: Alpha-1 antitrypsin deficiency
     Dosage: 60 MILLIGRAM/KILOGRAM, 1/WEEK
     Route: 042
     Dates: start: 20210216
  2. GLASSIA [Suspect]
     Active Substance: .ALPHA.1-PROTEINASE INHIBITOR HUMAN
     Indication: Alpha-1 antitrypsin deficiency
     Dosage: 60 MILLIGRAM/KILOGRAM, 1/WEEK
     Route: 042
     Dates: start: 20210216
  3. GLASSIA [Suspect]
     Active Substance: .ALPHA.1-PROTEINASE INHIBITOR HUMAN
     Dosage: 60 MILLIGRAM/KILOGRAM, Q4WEEKS
     Route: 042
     Dates: start: 20210216
  4. GLASSIA [Suspect]
     Active Substance: .ALPHA.1-PROTEINASE INHIBITOR HUMAN
     Dosage: 60 MILLIGRAM/KILOGRAM, Q4WEEKS
     Route: 042
     Dates: start: 20210216
  5. GAMMAGARD LIQUID [Suspect]
     Active Substance: HUMAN IMMUNOGLOBULIN G
     Indication: Alpha-1 antitrypsin deficiency
     Dosage: 400 MILLIGRAM/KILOGRAM, Q4WEEKS
     Route: 042
     Dates: start: 20190613
  6. DIPHENHYDRAMINE [Concomitant]
     Active Substance: DIPHENHYDRAMINE
  7. ACYCLOVIR [Concomitant]
     Active Substance: ACYCLOVIR
  8. VITAMIN D3 [Concomitant]
     Active Substance: CHOLECALCIFEROL
  9. DALIRESP [Concomitant]
     Active Substance: ROFLUMILAST
  10. ZINC [Concomitant]
     Active Substance: ZINC
  11. EPINEPHRINE ASCORBATE [Concomitant]
  12. SODIUM CHLORIDE [Concomitant]
     Active Substance: SODIUM CHLORIDE
  13. FLUTICASONE PROPIONATE [Concomitant]
     Active Substance: FLUTICASONE PROPIONATE
  14. EZETIMIBE [Concomitant]
     Active Substance: EZETIMIBE
  15. LIDOCAINE 5% EXTRA [Concomitant]
  16. PRILOCAINE [Concomitant]
     Active Substance: PRILOCAINE
  17. GAMMAGARD [Concomitant]
     Active Substance: HUMAN IMMUNOGLOBULIN G
  18. ZYRTEC [Concomitant]
     Active Substance: CETIRIZINE HYDROCHLORIDE
  19. VITAMIN E [Concomitant]
     Active Substance: .ALPHA.-TOCOPHEROL
  20. ACETAMINOPHEN [Concomitant]
     Active Substance: ACETAMINOPHEN
  21. BIOTIN [Concomitant]
     Active Substance: BIOTIN
  22. IPRATROPIUM BROMIDE [Concomitant]
     Active Substance: IPRATROPIUM BROMIDE
  23. ALBUTEROL [Concomitant]
     Active Substance: ALBUTEROL
  24. OXYGEN [Concomitant]
     Active Substance: OXYGEN
  25. BYSTOLIC [Concomitant]
     Active Substance: NEBIVOLOL HYDROCHLORIDE
  26. BIFIDOBACTERIUM LONGUM\LACTOBACILLUS ACIDOPHILUS [Concomitant]
     Active Substance: BIFIDOBACTERIUM LONGUM\LACTOBACILLUS ACIDOPHILUS
  27. PECTIN [Concomitant]
     Active Substance: PECTIN
  28. OMEPRAZOLE [Concomitant]
     Active Substance: OMEPRAZOLE
  29. TRICOR [Concomitant]
     Active Substance: FENOFIBRATE
  30. VITAMINS [Concomitant]
     Active Substance: VITAMINS
  31. SODIUM CHLORIDE [Concomitant]
     Active Substance: SODIUM CHLORIDE
  32. CALCIUM\VITAMIN D [Concomitant]
     Active Substance: CALCIUM\VITAMIN D
  33. MAGNESIUM [Concomitant]
     Active Substance: MAGNESIUM
  34. HERBALS\TURMERIC [Concomitant]
     Active Substance: HERBALS\TURMERIC
  35. MONTELUKAST SODIUM [Concomitant]
     Active Substance: MONTELUKAST SODIUM
  36. POTASSIUM [Concomitant]
     Active Substance: POTASSIUM
  37. Vitamin a + d [Concomitant]
  38. Lmx [Concomitant]
  39. MUCINEX [Concomitant]
     Active Substance: GUAIFENESIN
  40. CYMBALTA [Concomitant]
     Active Substance: DULOXETINE HYDROCHLORIDE
  41. VITAMIN C [Concomitant]
     Active Substance: ASCORBIC ACID
  42. CVS COENZYME Q 10 [Concomitant]
  43. LOSARTAN POTASSIUM [Concomitant]
     Active Substance: LOSARTAN POTASSIUM

REACTIONS (3)
  - Lung disorder [Unknown]
  - Chronic obstructive pulmonary disease [Unknown]
  - Arthralgia [Unknown]
